FAERS Safety Report 15058979 (Version 2)
Quarter: 2018Q4

REPORT INFORMATION
  Report Type: Report from Study
  Country: BR (occurrence: BR)
  Receive Date: 20180625
  Receipt Date: 20181130
  Transmission Date: 20190204
  Serious: Yes (Hospitalization, Other)
  Sender: FDA-Public Use
  Company Number: BR-SA-2018SA153483

PATIENT
  Age: 19 Year
  Sex: Female

DRUGS (2)
  1. INSULIN GLARGINE [Suspect]
     Active Substance: INSULIN GLARGINE
     Indication: PRODUCT USED FOR UNKNOWN INDICATION
     Dosage: 46 UI AT MORNING AND 36 UI AT NIGHT
     Route: 065
     Dates: start: 2010
  2. HUMALOG [Concomitant]
     Active Substance: INSULIN LISPRO
     Indication: ACUTE PAINFUL NEUROPATHY OF RAPID GLYCAEMIC CONTROL
     Dosage: 8 TO 11 UI
     Route: 065
     Dates: start: 2010

REACTIONS (2)
  - Hospitalisation [Unknown]
  - Product use issue [Unknown]
